FAERS Safety Report 7772431-3 (Version None)
Quarter: 2011Q3

REPORT INFORMATION
  Report Type: 
  Country: None (occurrence: None)
  Receive Date: 20110922
  Receipt Date: 20110914
  Transmission Date: 20111222
  Serious: Yes (Hospitalization, Other)
  Sender: FDA-Public Use
  Company Number: PHHY2011US82182

PATIENT
  Age: 66 Year
  Sex: Male

DRUGS (7)
  1. SULFAMETHOXAZOLE AND TRIMETHOPRIM [Suspect]
     Indication: URINARY TRACT INFECTION
     Dosage: UNK
  2. SIMVASTATIN [Concomitant]
     Dosage: UNK
  3. NAPROXEN [Suspect]
     Indication: ARTHRALGIA
     Dosage: UNK
  4. GLYBURIDE [Concomitant]
     Dosage: UNK
  5. LISINOPRIL [Suspect]
     Dosage: UNK
  6. SITAGLIPTIN [Concomitant]
     Dosage: UNK
  7. ROSIGLITAZONE [Concomitant]
     Dosage: UNK

REACTIONS (9)
  - CORONARY ARTERY DISEASE [None]
  - HYPERHIDROSIS [None]
  - ASTHENIA [None]
  - HYPERKALAEMIA [None]
  - BLOOD CREATININE INCREASED [None]
  - NAUSEA [None]
  - MUSCLE SPASMS [None]
  - DEHYDRATION [None]
  - BLOOD UREA INCREASED [None]
